FAERS Safety Report 18489010 (Version 2)
Quarter: 2020Q4

REPORT INFORMATION
  Report Type: Other
  Country: JP (occurrence: JP)
  Receive Date: 20201111
  Receipt Date: 20201116
  Transmission Date: 20210114
  Serious: Yes (Hospitalization)
  Sender: FDA-Public Use
  Company Number: JP-ROCHE-2710833

PATIENT
  Age: 8 Decade
  Sex: Male

DRUGS (6)
  1. COPEGUS [Suspect]
     Active Substance: RIBAVIRIN
     Indication: CHRONIC HEPATITIS C
     Dosage: 2 DAYS AND DOSE INTERVAL UNCERTAINTY
     Route: 048
  2. SOFOSBUVIR [Suspect]
     Active Substance: SOFOSBUVIR
     Indication: CHRONIC HEPATITIS C
     Dosage: 2 DAYS AND DOSE INTERVAL UNCERTAINTY
     Route: 048
  3. DABIGATRAN ETEXILATE METHANESULFONATE [Concomitant]
     Active Substance: DABIGATRAN
     Dosage: 3 YEARS AND DOSE INTERVAL UNCERTAINTY
     Route: 048
  4. AMIODARONE HYDROCHLORIDE. [Suspect]
     Active Substance: AMIODARONE HYDROCHLORIDE
     Indication: ATRIAL FIBRILLATION
     Dosage: 3 YEARS AND DOSE INTERVAL UNCERTAINTY
     Route: 048
  5. URSODEOXYCHOLIC ACID [Concomitant]
     Active Substance: URSODIOL
     Dosage: }10 YEARS AND DOSE INTERVAL UNCERTAINTY
     Route: 048
  6. AMLODIPINE BESILATE;CANDESARTAN CILEXETIL [Concomitant]
     Dosage: }10 YEARS AND DOSE INTERVAL UNCERTAINTY
     Route: 048

REACTIONS (1)
  - Bradycardia [Recovered/Resolved]
